FAERS Safety Report 8208866-4 (Version None)
Quarter: 2012Q1

REPORT INFORMATION
  Report Type: 
  Country: None (occurrence: None)
  Receive Date: 20120314
  Receipt Date: 20120305
  Transmission Date: 20120608
  Serious: Yes (Other)
  Sender: FDA-Public Use
  Company Number: US-ROCHE-1045606

PATIENT
  Sex: Female

DRUGS (3)
  1. ASCORBIC ACID [Concomitant]
     Indication: CHLOASMA
  2. HYDROQUINONE [Concomitant]
     Indication: CHLOASMA
  3. VESANOID [Suspect]
     Indication: CHLOASMA

REACTIONS (1)
  - SKIN IRRITATION [None]
